FAERS Safety Report 25072832 (Version 2)
Quarter: 2025Q1

REPORT INFORMATION
  Report Type: Spontaneous
  Country: LV (occurrence: LV)
  Receive Date: 20250313
  Receipt Date: 20250320
  Transmission Date: 20250408
  Serious: Yes (Other)
  Sender: TEVA
  Company Number: LV-TEVA-VS-3306076

PATIENT
  Age: 38 Year
  Sex: Female
  Weight: 57 kg

DRUGS (1)
  1. AJOVY [Suspect]
     Active Substance: FREMANEZUMAB-VFRM
     Indication: Migraine prophylaxis
     Dosage: LAST DOSE ADMINISTERED ON 2025-01-22.
     Route: 058
     Dates: start: 20241222, end: 20250122

REACTIONS (3)
  - Neuropathy peripheral [Unknown]
  - Tinnitus [Recovered/Resolved]
  - Paraesthesia [Not Recovered/Not Resolved]

NARRATIVE: CASE EVENT DATE: 20241226
